FAERS Safety Report 25895801 (Version 1)
Quarter: 2025Q4

REPORT INFORMATION
  Report Type: Spontaneous
  Country: EU (occurrence: EU)
  Receive Date: 20251008
  Receipt Date: 20251008
  Transmission Date: 20260118
  Serious: Yes (Hospitalization)
  Sender: TEVA
  Company Number: None

PATIENT
  Age: 15 Year
  Sex: Male
  Weight: 37.8 kg

DRUGS (6)
  1. COTRIMOXAZOLE [Suspect]
     Active Substance: SULFAMETHOXAZOLE\TRIMETHOPRIM
     Indication: Staphylococcal infection
     Dosage: COTRIMOXAZOLE TEVA 800 MG/160 MG
     Route: 048
     Dates: start: 20241024, end: 20241107
  2. ESOMEPRAZOLE [Concomitant]
     Active Substance: ESOMEPRAZOLE
     Indication: Gastrooesophageal reflux prophylaxis
     Route: 048
     Dates: start: 20241029, end: 20241103
  3. METOPIMAZINE [Concomitant]
     Active Substance: METOPIMAZINE
     Indication: Vomiting
     Dosage: METOPIMAZINE ARROW SUGAR-FREE, ORODISPERSIBLE TABLET SWEETENED WITH ASPARTAME
     Route: 048
     Dates: start: 20241026, end: 20241103
  4. XARELTO [Concomitant]
     Active Substance: RIVAROXABAN
     Indication: Pulmonary embolism
     Route: 048
     Dates: start: 20241017
  5. CLINDAMYCIN [Concomitant]
     Active Substance: CLINDAMYCIN
     Indication: Staphylococcal infection
     Dosage: CLINDAMYCINE VIATRIS
     Route: 048
     Dates: start: 20241001, end: 20241107
  6. CLINDAMYCIN [Concomitant]
     Active Substance: CLINDAMYCIN
     Indication: Staphylococcal infection
     Dosage: CLINDAMYCINE VIATRIS
     Route: 048
     Dates: start: 20241111, end: 20241231

REACTIONS (4)
  - Hepatic cytolysis [Recovered/Resolved]
  - Agranulocytosis [Recovered/Resolved]
  - Rash maculo-papular [Recovered/Resolved]
  - Pyrexia [Recovered/Resolved]

NARRATIVE: CASE EVENT DATE: 20241103
